FAERS Safety Report 14165979 (Version 3)
Quarter: 2017Q4

REPORT INFORMATION
  Report Type: Spontaneous
  Country: PH (occurrence: PH)
  Receive Date: 20171107
  Receipt Date: 20171201
  Transmission Date: 20180321
  Serious: Yes (Hospitalization)
  Sender: FDA-Public Use
  Company Number: PH-SA-2017SA216176

PATIENT
  Age: 64 Year
  Sex: Female
  Weight: 61.23 kg

DRUGS (2)
  1. LANTUS [Suspect]
     Active Substance: INSULIN GLARGINE
     Route: 051
  2. LANTUS [Suspect]
     Active Substance: INSULIN GLARGINE
     Route: 051

REACTIONS (9)
  - Renal disorder [Unknown]
  - Pneumonia [Unknown]
  - Blood creatinine increased [Unknown]
  - Dizziness [Unknown]
  - Mobility decreased [Unknown]
  - Device defective [Unknown]
  - Malaise [Unknown]
  - Asthenia [Unknown]
  - Vomiting [Unknown]
